FAERS Safety Report 16299005 (Version 2)
Quarter: 2020Q3

REPORT INFORMATION
  Report Type: Spontaneous
  Country: US (occurrence: US)
  Receive Date: 20190510
  Receipt Date: 20200916
  Transmission Date: 20201102
  Serious: Yes (Life-Threatening, Hospitalization, Other)
  Sender: FDA-Public Use
  Company Number: US-PFIZER INC-2019195958

PATIENT
  Age: 36 Year
  Sex: Male
  Weight: 74.83 kg

DRUGS (11)
  1. GABAPENTIN. [Suspect]
     Active Substance: GABAPENTIN
     Indication: NERVE INJURY
     Dosage: 100 MG, UNK
     Route: 048
  2. OXYCODONE [Suspect]
     Active Substance: OXYCODONE
     Dosage: UNK, (WAS UPPED TO 10MG, YEAR AND A HALF LATER, HE HAD A REVERSAL)
  3. CLONAZEPAM. [Suspect]
     Active Substance: CLONAZEPAM
     Dosage: 0.5 MG, 3X/DAY
  4. TOPAMAX [Suspect]
     Active Substance: TOPIRAMATE
     Indication: SEIZURE
     Dosage: 100 MG, 1X/DAY
  5. GABAPENTIN. [Suspect]
     Active Substance: GABAPENTIN
     Dosage: UNK, 1X/DAY
     Route: 048
  6. CELEBREX [Suspect]
     Active Substance: CELECOXIB
     Dosage: 200 MG, 1X/DAY
  7. CLONAZEPAM. [Suspect]
     Active Substance: CLONAZEPAM
     Indication: ANXIETY
     Dosage: 1 MG, 4X/DAY
     Route: 048
     Dates: start: 20110514
  8. TOPAMAX [Suspect]
     Active Substance: TOPIRAMATE
     Indication: MIGRAINE
     Dosage: 200 MG, 2X/DAY
     Route: 048
     Dates: start: 2011
  9. GABAPENTIN. [Suspect]
     Active Substance: GABAPENTIN
     Indication: NEURALGIA
     Dosage: 600 MG, 1X/DAY
     Route: 048
     Dates: start: 2013
  10. GABAPENTIN. [Suspect]
     Active Substance: GABAPENTIN
     Dosage: 800 MG, 3X/DAY
     Route: 048
  11. GABAPENTIN. [Suspect]
     Active Substance: GABAPENTIN
     Dosage: UNK, 3X/DAY
     Route: 048

REACTIONS (26)
  - Dry skin [Not Recovered/Not Resolved]
  - Scab [Unknown]
  - Therapeutic product effect incomplete [Unknown]
  - Dysarthria [Not Recovered/Not Resolved]
  - Anal incontinence [Unknown]
  - Suicide attempt [Unknown]
  - Weight decreased [Unknown]
  - Amnesia [Unknown]
  - Vomiting [Recovering/Resolving]
  - Mutism [Unknown]
  - Paranoia [Not Recovered/Not Resolved]
  - Onychophagia [Not Recovered/Not Resolved]
  - Fall [Recovered/Resolved with Sequelae]
  - Gastric disorder [Unknown]
  - Product use in unapproved indication [Unknown]
  - Joint stiffness [Recovering/Resolving]
  - Tooth loss [Unknown]
  - Stomach mass [Unknown]
  - Epistaxis [Not Recovered/Not Resolved]
  - Nausea [Unknown]
  - Depression [Not Recovered/Not Resolved]
  - Off label use [Unknown]
  - Dental caries [Not Recovered/Not Resolved]
  - Dry mouth [Not Recovered/Not Resolved]
  - Influenza like illness [Not Recovered/Not Resolved]
  - Road traffic accident [Unknown]

NARRATIVE: CASE EVENT DATE: 2012
